FAERS Safety Report 5173301-X (Version None)
Quarter: 2006Q4

REPORT INFORMATION
  Report Type: 
  Country: None (occurrence: None)
  Receive Date: 20061214
  Receipt Date: 20050203
  Transmission Date: 20070319
  Serious: Yes (Hospitalization, Disabling)
  Sender: FDA-Public Use
  Company Number: 2005AC00218

PATIENT
  Age: 12423 Day
  Sex: Female

DRUGS (4)
  1. XYLOCAINE [Suspect]
     Indication: LOCAL ANAESTHESIA
     Route: 008
     Dates: start: 20040818, end: 20040818
  2. XYLOCAINE [Suspect]
     Indication: CAESAREAN SECTION
     Route: 008
     Dates: start: 20040818, end: 20040818
  3. NAROPIN [Suspect]
     Indication: ANAESTHESIA
     Route: 008
     Dates: start: 20040818, end: 20040819
  4. NAROPIN [Suspect]
     Indication: CAESAREAN SECTION
     Route: 008
     Dates: start: 20040818, end: 20040819

REACTIONS (7)
  - ARACHNOIDITIS [None]
  - CAESAREAN SECTION [None]
  - CAUDA EQUINA SYNDROME [None]
  - HYPERAESTHESIA [None]
  - MICTURITION DISORDER [None]
  - NEUROTOXICITY [None]
  - PARAPLEGIA [None]
